FAERS Safety Report 17454460 (Version 1)
Quarter: 2020Q1

REPORT INFORMATION
  Report Type: Report from Study
  Country: IT (occurrence: IT)
  Receive Date: 20200225
  Receipt Date: 20200225
  Transmission Date: 20200409
  Serious: Yes (Other)
  Sender: FDA-Public Use
  Company Number: IT-TEVA-2020-IT-1190707

PATIENT
  Age: 63 Year
  Sex: Male

DRUGS (1)
  1. IRINOTECAN HYDROCHLORIDE TRIHYDRATE [Suspect]
     Active Substance: IRINOTECAN HYDROCHLORIDE
     Indication: ADENOCARCINOMA PANCREAS
     Dosage: 350 MG
     Route: 042

REACTIONS (3)
  - Extravasation [Recovering/Resolving]
  - Infusion site pain [Recovering/Resolving]
  - Vascular access site swelling [Recovering/Resolving]

NARRATIVE: CASE EVENT DATE: 20180831
